FAERS Safety Report 8141353-0 (Version None)
Quarter: 2012Q1

REPORT INFORMATION
  Report Type: 
  Country: None (occurrence: None)
  Receive Date: 20120216
  Receipt Date: 20120207
  Transmission Date: 20120608
  Serious: Yes (Hospitalization, Other)
  Sender: FDA-Public Use
  Company Number: US-ROCHE-1011179

PATIENT
  Sex: Male

DRUGS (5)
  1. HERCEPTIN [Suspect]
     Dosage: OVER 30-90 MINUTES ON DAYS 1,8, AND 15
     Route: 042
  2. GEMCITABINE HYDROCHLORIDE [Suspect]
     Indication: TRANSITIONAL CELL CARCINOMA
     Dosage: OVER 30 MINUTES ON DAYA 1 AND 8
     Route: 042
     Dates: start: 20031223
  3. PACLITAXEL [Suspect]
     Indication: TRANSITIONAL CELL CARCINOMA
     Dosage: OVER 3 HOURS ON DAY 1
     Route: 042
     Dates: start: 20031223
  4. CARBOPLATIN [Suspect]
     Indication: TRANSITIONAL CELL CARCINOMA
     Dosage: 5 AUC OVER 15 MINUTES ON DAY 1
     Route: 042
     Dates: start: 20031223
  5. HERCEPTIN [Suspect]
     Indication: TRANSITIONAL CELL CARCINOMA
     Dosage: LOADING DOSE
     Route: 042
     Dates: start: 20031223

REACTIONS (5)
  - GROIN ABSCESS [None]
  - NEUTROPENIC INFECTION [None]
  - ANAEMIA [None]
  - MUSCULAR WEAKNESS [None]
  - CELLULITIS OF MALE EXTERNAL GENITAL ORGAN [None]
